FAERS Safety Report 10626577 (Version 2)
Quarter: 2015Q1

REPORT INFORMATION
  Report Type: Spontaneous
  Country: IT (occurrence: IT)
  Receive Date: 20141204
  Receipt Date: 20150109
  Transmission Date: 20150720
  Serious: Yes (Life-Threatening)
  Sender: FDA-Public Use
  Company Number: IT-BAYER-2014-175997

PATIENT
  Age: 70 Year
  Sex: Male

DRUGS (1)
  1. NEXAVAR [Suspect]
     Active Substance: SORAFENIB
     Indication: RENAL CANCER
     Dosage: DAILY DOSE 400 MG
     Route: 048
     Dates: start: 20140710, end: 20140921

REACTIONS (2)
  - Peritonitis [Recovered/Resolved with Sequelae]
  - Large intestine perforation [Recovered/Resolved with Sequelae]

NARRATIVE: CASE EVENT DATE: 20140922
